FAERS Safety Report 5308835-8 (Version None)
Quarter: 2007Q2

REPORT INFORMATION
  Report Type: 
  Country: None (occurrence: None)
  Receive Date: 20070426
  Receipt Date: 20070312
  Transmission Date: 20071010
  Serious: Yes (Hospitalization)
  Sender: FDA-Public Use
  Company Number: US-SANOFI-SYNTHELABO-A03200702320

PATIENT
  Sex: Male

DRUGS (5)
  1. XANAX [Concomitant]
     Dosage: UNK
     Route: 065
  2. PAXIL [Concomitant]
     Dosage: UNK
     Route: 065
  3. AMBIEN [Suspect]
     Indication: INSOMNIA
     Route: 048
     Dates: start: 20061010
  4. LEXAPRO [Concomitant]
     Dosage: UNK
     Route: 065
  5. ALCOHOL [Concomitant]
     Dosage: OCCASIONALLY DRINK ALCOHOL WHILE TAKING ZOLPIDEM BUT ^VERY LITTLE^ AND IT WOULD BE EARLIER IN THE EV
     Route: 048

REACTIONS (3)
  - FEELING ABNORMAL [None]
  - INITIAL INSOMNIA [None]
  - ROAD TRAFFIC ACCIDENT [None]
